FAERS Safety Report 6878414-X (Version None)
Quarter: 2010Q2

REPORT INFORMATION
  Report Type: 
  Country: None (occurrence: None)
  Receive Date: 20100624
  Receipt Date: 20100303
  Transmission Date: 20101027
  Serious: Yes (Hospitalization, Other)
  Sender: FDA-Public Use
  Company Number: SOLV00210001370

PATIENT
  Age: 47 Year
  Sex: Female

DRUGS (3)
  1. PROMETRIUM [Suspect]
     Indication: UTERINE LEIOMYOMA
     Dosage: DAILY, DAILY DOSE
     Dates: start: 20070813, end: 20070820
  2. NUVARING [Suspect]
     Indication: CONTRACEPTION
     Dosage: DAILY, DAILY DOSE
     Dates: start: 20070702, end: 20070820
  3. NUVARING [Suspect]
     Indication: MENORRHAGIA
     Dosage: DAILY, DAILY DOSE
     Dates: start: 20070702, end: 20070820

REACTIONS (2)
  - DEEP VEIN THROMBOSIS [None]
  - OFF LABEL USE [None]
